FAERS Safety Report 22804449 (Version 2)
Quarter: 2023Q4

REPORT INFORMATION
  Report Type: Spontaneous
  Country: US (occurrence: US)
  Receive Date: 20230809
  Receipt Date: 20231219
  Transmission Date: 20240109
  Serious: No
  Sender: FDA-Public Use
  Company Number: US-PFIZER INC-PV202300136595

PATIENT
  Age: 88 Year
  Sex: Female
  Weight: 77.188 kg

DRUGS (2)
  1. IBRANCE [Suspect]
     Active Substance: PALBOCICLIB
     Indication: Breast cancer female
     Dosage: 100 MG, CYCLIC (DAILY ON DAYS 1-21 EVERY 28 DAYS/3 WEEKS ON, 1 WEEK OFF)
     Route: 048
     Dates: start: 20191001
  2. AROMASIN [Suspect]
     Active Substance: EXEMESTANE
     Indication: Malignant nipple neoplasm
     Dosage: 25 MG, 1X/DAY
     Route: 048
     Dates: start: 20190808

REACTIONS (6)
  - Asthenia [Not Recovered/Not Resolved]
  - Fatigue [Not Recovered/Not Resolved]
  - Pain [Not Recovered/Not Resolved]
  - Anaemia [Not Recovered/Not Resolved]
  - White blood cell count decreased [Not Recovered/Not Resolved]
  - Overweight [Not Recovered/Not Resolved]
